FAERS Safety Report 14687519 (Version 2)
Quarter: 2019Q1

REPORT INFORMATION
  Report Type: Spontaneous
  Country: US (occurrence: US)
  Receive Date: 20180328
  Receipt Date: 20190103
  Transmission Date: 20190417
  Serious: No
  Sender: FDA-Public Use
  Company Number: US-BIOGEN-2018BI00546521

PATIENT
  Sex: Female

DRUGS (1)
  1. TECFIDERA [Suspect]
     Active Substance: DIMETHYL FUMARATE
     Indication: MULTIPLE SCLEROSIS
     Dosage: MAINTENANCE DOSE
     Route: 048
     Dates: start: 20170626

REACTIONS (7)
  - Stress [Unknown]
  - Loose tooth [Not Recovered/Not Resolved]
  - Tooth loss [Unknown]
  - Asthenia [Unknown]
  - Arthritis [Not Recovered/Not Resolved]
  - Dizziness [Unknown]
  - Nausea [Unknown]
